FAERS Safety Report 20911649 (Version 2)
Quarter: 2023Q1

REPORT INFORMATION
  Report Type: Spontaneous
  Country: US (occurrence: US)
  Receive Date: 20220603
  Receipt Date: 20230330
  Transmission Date: 20230417
  Serious: No
  Sender: FDA-Public Use
  Company Number: US-BRISTOL-MYERS SQUIBB COMPANY-2022-043157

PATIENT
  Age: 72 Year
  Sex: Female
  Weight: 65.73 kg

DRUGS (1)
  1. POMALYST [Suspect]
     Active Substance: POMALIDOMIDE
     Indication: Plasma cell myeloma
     Dosage: FREQUENCY: DAYS 1-21 Q 28 DAYS
     Route: 048
     Dates: start: 20220501

REACTIONS (5)
  - Laboratory test abnormal [Unknown]
  - Urticaria [Not Recovered/Not Resolved]
  - Dysphonia [Not Recovered/Not Resolved]
  - Pain in extremity [Not Recovered/Not Resolved]
  - Pruritus [Not Recovered/Not Resolved]
